FAERS Safety Report 17898529 (Version 1)
Quarter: 2020Q2

REPORT INFORMATION
  Report Type: Report from Study
  Country: CN (occurrence: CN)
  Receive Date: 20200615
  Receipt Date: 20200615
  Transmission Date: 20200714
  Serious: Yes (Other)
  Sender: FDA-Public Use
  Company Number: CN-JNJFOC-20200605443

PATIENT

DRUGS (2)
  1. KETOCONAZOLE. [Suspect]
     Active Substance: KETOCONAZOLE
     Indication: PRODUCT USED FOR UNKNOWN INDICATION
     Route: 065
  2. SPORANOX [Suspect]
     Active Substance: ITRACONAZOLE
     Indication: PRODUCT USED FOR UNKNOWN INDICATION
     Route: 065

REACTIONS (104)
  - Adrenal insufficiency [Unknown]
  - Cystitis haemorrhagic [Unknown]
  - Organising pneumonia [Unknown]
  - Haemolytic uraemic syndrome [Unknown]
  - Respiratory failure [Unknown]
  - Hepatic necrosis [Unknown]
  - Bile duct stone [Unknown]
  - Alanine aminotransferase increased [Unknown]
  - Normochromic normocytic anaemia [Unknown]
  - Blood lactate dehydrogenase increased [Unknown]
  - Supraventricular extrasystoles [Unknown]
  - Cardiac hypertrophy [Unknown]
  - Pleural effusion [Unknown]
  - Purpura [Unknown]
  - Hepatobiliary disease [Unknown]
  - Venoocclusive liver disease [Unknown]
  - Cholestasis [Unknown]
  - Toxic skin eruption [Unknown]
  - Renal impairment [Unknown]
  - Hydronephrosis [Unknown]
  - Atrial tachycardia [Unknown]
  - Left ventricular dilatation [Unknown]
  - Chronic sinusitis [Unknown]
  - Nocturia [Unknown]
  - Splenomegaly [Unknown]
  - Hepatosplenomegaly [Unknown]
  - Cortisol decreased [Unknown]
  - Capillary leak syndrome [Unknown]
  - Nephropathy toxic [Unknown]
  - Antiphospholipid antibodies positive [Unknown]
  - Blood chloride decreased [Unknown]
  - Ventricular hypertrophy [Unknown]
  - Skin mass [Unknown]
  - Hepatic function abnormal [Unknown]
  - Electrocardiogram QT prolonged [Unknown]
  - Acute kidney injury [Unknown]
  - Pulmonary alveolar haemorrhage [Unknown]
  - Pulmonary haemorrhage [Unknown]
  - Disseminated intravascular coagulation [Unknown]
  - Left ventricular failure [Unknown]
  - Aspartate aminotransferase increased [Unknown]
  - Sleep apnoea syndrome [Unknown]
  - Upper-airway cough syndrome [Unknown]
  - Dandruff [Unknown]
  - Hair texture abnormal [Unknown]
  - Biliary dyskinesia [Unknown]
  - Ubiquinone decreased [Unknown]
  - Tracheobronchitis [Unknown]
  - Subcutaneous abscess [Unknown]
  - Blood loss anaemia [Unknown]
  - Obliterative bronchiolitis [Unknown]
  - Hepatitis cholestatic [Unknown]
  - Renal tubular necrosis [Unknown]
  - Hypothyroidism [Unknown]
  - Adrenal suppression [Unknown]
  - Hepatitis [Unknown]
  - Blood testosterone decreased [Unknown]
  - Diastolic dysfunction [Unknown]
  - Atelectasis [Unknown]
  - Renal cyst [Unknown]
  - Seborrhoeic dermatitis [Unknown]
  - Seborrhoea [Unknown]
  - Seborrhoeic keratosis [Unknown]
  - Actinic keratosis [Unknown]
  - Hepatic cyst [Unknown]
  - Aplastic anaemia [Unknown]
  - Thrombotic microangiopathy [Unknown]
  - Chronic kidney disease [Unknown]
  - Lymphopenia [Unknown]
  - Dyspnoea exertional [Unknown]
  - Dilatation atrial [Unknown]
  - Red man syndrome [Unknown]
  - Cushingoid [Unknown]
  - Tricuspid valve incompetence [Unknown]
  - Thrombocytopenia [Unknown]
  - Acute pulmonary oedema [Unknown]
  - Diabetes mellitus inadequate control [Unknown]
  - Diffuse alveolar damage [Unknown]
  - Pulmonary fibrosis [Unknown]
  - Granulocytopenia [Unknown]
  - Hepatotoxicity [Unknown]
  - Hepatitis acute [Unknown]
  - Aortic arteriosclerosis [Unknown]
  - Left ventricular hypertrophy [Unknown]
  - Lung infiltration [Unknown]
  - Amylase increased [Unknown]
  - Lymphadenitis [Unknown]
  - Neutropenic sepsis [Unknown]
  - Leukopenia [Unknown]
  - Adrenocortical insufficiency acute [Unknown]
  - Cardiac failure acute [Unknown]
  - Febrile neutropenia [Unknown]
  - Blood alkaline phosphatase increased [Unknown]
  - Pleural fibrosis [Unknown]
  - Orthopnoea [Unknown]
  - Bronchospasm [Unknown]
  - Urinary incontinence [Unknown]
  - Body tinea [Unknown]
  - Jaundice [Unknown]
  - Diabetic neuropathy [Unknown]
  - C-reactive protein increased [Unknown]
  - Sinus bradycardia [Unknown]
  - Oliguria [Unknown]
  - Proteinuria [Unknown]
